FAERS Safety Report 12077463 (Version 3)
Quarter: 2016Q2

REPORT INFORMATION
  Report Type: Spontaneous
  Country: US (occurrence: US)
  Receive Date: 20160215
  Receipt Date: 20160418
  Transmission Date: 20160815
  Serious: Yes (Other)
  Sender: FDA-Public Use
  Company Number: US-PFIZER INC-2016050017

PATIENT
  Age: 63 Year
  Sex: Male
  Weight: 94 kg

DRUGS (21)
  1. GABAPENTIN. [Concomitant]
     Active Substance: GABAPENTIN
     Dosage: 200 MG (AFTER 1 WEEK INCREASE TO 2 AT BEDTIME)
     Route: 048
     Dates: start: 20150619
  2. BENADRYL [Concomitant]
     Active Substance: DIPHENHYDRAMINE HYDROCHLORIDE
  3. CARVEDILOL. [Concomitant]
     Active Substance: CARVEDILOL
     Dosage: 25 MG, 2X/DAY
     Route: 048
  4. TYLENOL [Concomitant]
     Active Substance: ACETAMINOPHEN
     Dosage: 1000 MG, 3X/DAY (500 MG 2 PO TID)
     Route: 048
  5. ATORVASTATIN CALCIUM. [Concomitant]
     Active Substance: ATORVASTATIN CALCIUM
     Dosage: 80 MG, 1X/DAY
     Route: 048
     Dates: start: 20150804
  6. FUROSEMIDE. [Concomitant]
     Active Substance: FUROSEMIDE
     Dosage: 10 MG, 2X/DAY (EVERY TWELVE HOURS)
     Dates: start: 20141117
  7. FUROSEMIDE. [Concomitant]
     Active Substance: FUROSEMIDE
     Dosage: 40 MG, 2X/DAY
     Dates: start: 20141117
  8. GABAPENTIN. [Concomitant]
     Active Substance: GABAPENTIN
     Dosage: 100 MG (1 CAPSULE BEDTIME)
     Route: 048
     Dates: start: 20150612
  9. RAMIPRIL. [Concomitant]
     Active Substance: RAMIPRIL
     Dosage: 2.5 MG, 1X/DAY
     Dates: start: 20150819
  10. GLUTOSE [Concomitant]
     Active Substance: DEXTROSE
     Indication: BLOOD GLUCOSE DECREASED
     Dosage: UNK, AS NEEDED
     Route: 048
  11. AMLODIPINE BESYLATE. [Concomitant]
     Active Substance: AMLODIPINE BESYLATE
     Dosage: 5 MG, 1X/DAY
     Route: 048
  12. GABAPENTIN. [Concomitant]
     Active Substance: GABAPENTIN
     Dosage: 300 MG (AFTER 1 WEEK INCREASE TO 3 AT BEDTIME)
     Dates: start: 20150626
  13. LORATADINE. [Concomitant]
     Active Substance: LORATADINE
     Indication: HYPERSENSITIVITY
     Dosage: 10 MG, 1X/DAY (IN THE MORNING)
     Route: 048
  14. DENOSUMAB [Concomitant]
     Active Substance: DENOSUMAB
     Indication: METASTATIC NEOPLASM
     Dosage: UNK, MONTHLY
  15. CALCIUM [Concomitant]
     Active Substance: CALCIUM
     Dosage: UNK UNK, 2X/DAY (600 TABS BID)
  16. HUMULIN NOS [Concomitant]
     Active Substance: INSULIN HUMAN
     Dosage: 20 IU, UNK (70/30 (70-30) 100 UNIT/ML / BEFORE MEALS)
     Route: 058
  17. OMEPRAZOLE. [Concomitant]
     Active Substance: OMEPRAZOLE
     Dosage: 20 MG, AS NEEDED (TAKE 1 CAPSULE DAILY PRN)
     Route: 048
     Dates: start: 20150604
  18. INLYTA [Suspect]
     Active Substance: AXITINIB
     Indication: METASTATIC RENAL CELL CARCINOMA
     Dosage: 5 MG, 2X/DAY  (EVERY TWELVE HOURS)
     Route: 048
     Dates: start: 20150123
  19. HUMULIN R [Concomitant]
     Active Substance: INSULIN HUMAN
     Indication: BLOOD GLUCOSE ABNORMAL
     Dosage: 20 IU, AS NEEDED (DIRECTED BASED ON BLOOD GLUCOSE)
  20. TRAMADOL HCL [Concomitant]
     Active Substance: TRAMADOL HYDROCHLORIDE
     Indication: PAIN
     Dosage: 50 MG, AS NEEDED (50 MG ORAL TABLET TAKE 1 TO 2 TABLETS EVERY 6 HOURS AS NEEDED)
     Route: 048
     Dates: start: 20140627
  21. INLYTA [Suspect]
     Active Substance: AXITINIB
     Dosage: 3 MG, 2X/DAY (1 MG ORAL TABLET TAKE 3 TABLET EVERY TWELVE HOURS)
     Route: 048
     Dates: start: 20150711

REACTIONS (25)
  - Quadrantanopia [Unknown]
  - Abdominal discomfort [Unknown]
  - Fatigue [Unknown]
  - Headache [Unknown]
  - Rib fracture [Unknown]
  - Diarrhoea [Recovered/Resolved]
  - Hypoacusis [Unknown]
  - Sleep disorder [Unknown]
  - Constipation [Unknown]
  - Dyspepsia [Unknown]
  - Metastatic renal cell carcinoma [Unknown]
  - Dyslipidaemia [Unknown]
  - Haemorrhagic diathesis [Unknown]
  - Cough [Unknown]
  - Pain [Unknown]
  - Balance disorder [Unknown]
  - Disease progression [Unknown]
  - Vision blurred [Unknown]
  - Pain in extremity [Unknown]
  - Aortic disorder [Unknown]
  - Epistaxis [Unknown]
  - Hypertension [Unknown]
  - Musculoskeletal pain [Unknown]
  - Rash [Unknown]
  - Pruritus [Unknown]

NARRATIVE: CASE EVENT DATE: 201506
